FAERS Safety Report 15478324 (Version 8)
Quarter: 2019Q2

REPORT INFORMATION
  Report Type: Spontaneous
  Country: US (occurrence: US)
  Receive Date: 20181009
  Receipt Date: 20190402
  Transmission Date: 20190711
  Serious: Yes (Death, Other)
  Sender: FDA-Public Use
  Company Number: US-SA-2018SA276060

PATIENT
  Age: 86 Year
  Sex: Male

DRUGS (21)
  1. DUPIXENT [Suspect]
     Active Substance: DUPILUMAB
     Indication: DERMATITIS ATOPIC
     Dosage: 300 MG, QOW
     Route: 058
  2. TRIAMCINOLONE ACETONIDE. [Concomitant]
     Active Substance: TRIAMCINOLONE ACETONIDE
  3. ATORVASTATIN CALCIUM. [Concomitant]
     Active Substance: ATORVASTATIN CALCIUM
  4. BETAMETHASONE DIPROPIONATE. [Concomitant]
     Active Substance: BETAMETHASONE DIPROPIONATE
  5. SYMBICORT [Concomitant]
     Active Substance: BUDESONIDE\FORMOTEROL FUMARATE DIHYDRATE
  6. POTASSIUM [Concomitant]
     Active Substance: POTASSIUM
  7. FLUTICASONE. [Concomitant]
     Active Substance: FLUTICASONE
  8. CLINDAMYCIN. [Concomitant]
     Active Substance: CLINDAMYCIN
  9. ELIQUIS [Concomitant]
     Active Substance: APIXABAN
  10. CARTIA XT [Concomitant]
     Active Substance: DILTIAZEM HYDROCHLORIDE
  11. XARELTO [Concomitant]
     Active Substance: RIVAROXABAN
  12. AZELASTINE HCL [Concomitant]
     Active Substance: AZELASTINE HYDROCHLORIDE
  13. DUPIXENT [Suspect]
     Active Substance: DUPILUMAB
     Indication: PSORIASIS
     Dosage: 600 MG, 1X
     Route: 058
  14. GABAPENTIN. [Concomitant]
     Active Substance: GABAPENTIN
  15. SULFAMETHOXAZOLE AND TRIMETHOPRIM [Concomitant]
     Active Substance: SULFAMETHOXAZOLE\TRIMETHOPRIM
  16. CIPRO [Concomitant]
     Active Substance: CIPROFLOXACIN HYDROCHLORIDE
  17. DUPIXENT [Suspect]
     Active Substance: DUPILUMAB
     Indication: ASTHMA
  18. METOPROLOL TARTRATE. [Concomitant]
     Active Substance: METOPROLOL TARTRATE
  19. TORSEMIDE. [Concomitant]
     Active Substance: TORSEMIDE
  20. TAMSULOSIN HCL [Concomitant]
     Active Substance: TAMSULOSIN HYDROCHLORIDE
  21. PREDNISONE. [Concomitant]
     Active Substance: PREDNISONE

REACTIONS (8)
  - General physical health deterioration [Unknown]
  - Insomnia [Unknown]
  - Product dose omission [Unknown]
  - Withdrawal syndrome [Unknown]
  - Death [Fatal]
  - Product use in unapproved indication [Unknown]
  - Intestinal resection [Unknown]
  - Drug ineffective [Unknown]

NARRATIVE: CASE EVENT DATE: 20180916
